FAERS Safety Report 11323747 (Version 1)
Quarter: 2015Q3

REPORT INFORMATION
  Report Type: Spontaneous
  Country: US (occurrence: US)
  Receive Date: 20150730
  Receipt Date: 20150730
  Transmission Date: 20151125
  Serious: No
  Sender: FDA-Public Use
  Company Number: US-ASTRAZENECA-2015SE71386

PATIENT
  Age: 708 Month
  Sex: Male
  Weight: 79.4 kg

DRUGS (3)
  1. RAPAFLO [Concomitant]
     Active Substance: SILODOSIN
     Indication: URINARY RETENTION
     Route: 048
     Dates: start: 201412
  2. CASODEX [Suspect]
     Active Substance: BICALUTAMIDE
     Indication: PROSTATE CANCER
     Route: 048
     Dates: start: 20150612
  3. LUPRON DEPOT [Suspect]
     Active Substance: LEUPROLIDE ACETATE
     Indication: PROSTATE CANCER
     Dosage: 0.25 MG(22.5 MG, ONE IN THREE MONTH)
     Route: 065
     Dates: start: 20150618

REACTIONS (2)
  - Micturition urgency [Unknown]
  - Polyuria [Unknown]

NARRATIVE: CASE EVENT DATE: 201506
